FAERS Safety Report 25925207 (Version 1)
Quarter: 2025Q4

REPORT INFORMATION
  Report Type: Spontaneous
  Country: CA (occurrence: CA)
  Receive Date: 20251015
  Receipt Date: 20251015
  Transmission Date: 20260117
  Serious: Yes (Other)
  Sender: PFIZER
  Company Number: CA-PFIZER INC-202500140707

PATIENT
  Age: 38 Year
  Sex: Female

DRUGS (7)
  1. RUXIENCE [Suspect]
     Active Substance: RITUXIMAB-PVVR
     Indication: Neuromyelitis optica spectrum disorder
     Dosage: 1000 MG, DAY 1 AND DAY 15
     Route: 042
     Dates: start: 20230712, end: 20230726
  2. RUXIENCE [Suspect]
     Active Substance: RITUXIMAB-PVVR
     Dosage: 1000 MG, DOSE 1 ONLY
     Route: 042
     Dates: start: 20240209, end: 20240209
  3. RUXIENCE [Suspect]
     Active Substance: RITUXIMAB-PVVR
     Dosage: 500 MG, EVERY 3 MONTHS
     Route: 042
     Dates: start: 20241126
  4. RUXIENCE [Suspect]
     Active Substance: RITUXIMAB-PVVR
     Dosage: 500 MG, EVERY 3 MONTHS
     Route: 042
     Dates: start: 20250311
  5. RUXIENCE [Suspect]
     Active Substance: RITUXIMAB-PVVR
     Dosage: 500 MG, AFTER 17 WEEKS AND 1 DAY (PRESCRIBED EVERY 3 MONTHS)
     Route: 042
     Dates: start: 20250709, end: 20250709
  6. RUXIENCE [Suspect]
     Active Substance: RITUXIMAB-PVVR
     Dosage: 500 MG,  3 MONTHS
     Route: 042
     Dates: start: 20251009
  7. GLATIRAMER ACETATE [Concomitant]
     Active Substance: GLATIRAMER ACETATE
     Dosage: UNK

REACTIONS (10)
  - Fall [Recovering/Resolving]
  - Ligament sprain [Recovering/Resolving]
  - Ligament rupture [Recovering/Resolving]
  - Tendon injury [Recovering/Resolving]
  - Nausea [Recovered/Resolved]
  - Throat irritation [Recovered/Resolved]
  - Infusion site pain [Unknown]
  - Injection site reaction [Unknown]
  - Tremor [Unknown]
  - Condition aggravated [Unknown]

NARRATIVE: CASE EVENT DATE: 20250401
